FAERS Safety Report 9081119 (Version 1)
Quarter: 2013Q1

REPORT INFORMATION
  Report Type: Report from Study
  Country: US (occurrence: US)
  Receive Date: 20130130
  Receipt Date: 20130130
  Transmission Date: 20140127
  Serious: No
  Sender: FDA-Public Use
  Company Number: US-ABBOTT-12P-163-0961765-00

PATIENT
  Age: 73 Year
  Sex: Male

DRUGS (4)
  1. HUMIRA 40 MG/0.8 ML PEN [Suspect]
     Indication: ANKYLOSING SPONDYLITIS
  2. VOLTAREN [Concomitant]
     Indication: PAIN
  3. TRAMADOL [Concomitant]
     Indication: PAIN
  4. PROTONIX [Concomitant]
     Indication: DRUG THERAPY

REACTIONS (1)
  - Pain [Not Recovered/Not Resolved]
